FAERS Safety Report 4551722-3 (Version None)
Quarter: 2005Q1

REPORT INFORMATION
  Report Type: 
  Country: None (occurrence: None)
  Receive Date: 20050113
  Receipt Date: 20050105
  Transmission Date: 20050727
  Serious: Yes (Hospitalization, Other)
  Sender: FDA-Public Use
  Company Number: FR-BRISTOL-MYERS SQUIBB COMPANY-12814034

PATIENT
  Age: 63 Year
  Sex: Female

DRUGS (5)
  1. CARBOPLATIN [Suspect]
     Route: 042
     Dates: start: 20041103, end: 20041103
  2. TAXOL [Suspect]
     Route: 042
     Dates: start: 20041103, end: 20041103
  3. IMOVANE [Concomitant]
  4. LEVOTHYROX [Concomitant]
  5. BISOPROLOL FUMARATE [Concomitant]

REACTIONS (3)
  - ANOREXIA [None]
  - ASTHENIA [None]
  - POLYNEUROPATHY [None]
